FAERS Safety Report 19919427 (Version 1)
Quarter: 2021Q4

REPORT INFORMATION
  Report Type: Spontaneous
  Country: US (occurrence: US)
  Receive Date: 20211004
  Receipt Date: 20211004
  Transmission Date: 20220303
  Serious: No
  Sender: FDA-Public Use
  Company Number: US-JNJFOC-20210931858

PATIENT
  Age: 51 Year
  Sex: Female

DRUGS (2)
  1. PEPCID AC [Suspect]
     Active Substance: FAMOTIDINE
     Indication: Gastrooesophageal reflux disease
     Dosage: TOTAL: 3 TABLETS (DURING THE DURATION OF USE)
     Route: 065
  2. PEPCID AC [Suspect]
     Active Substance: FAMOTIDINE
     Indication: Gastrooesophageal reflux disease
     Dosage: TOTAL: 10 TABLETS (DURING THE DURATION OF USE)
     Route: 065
     Dates: start: 202102, end: 202102

REACTIONS (1)
  - Burning sensation [Recovered/Resolved]

NARRATIVE: CASE EVENT DATE: 20210201
